FAERS Safety Report 9028454 (Version 1)
Quarter: 2013Q1

REPORT INFORMATION
  Report Type: Spontaneous
  Country: CH (occurrence: CH)
  Receive Date: 20130124
  Receipt Date: 20130124
  Transmission Date: 20140127
  Serious: Yes (Other)
  Sender: FDA-Public Use
  Company Number: CH-VERTEX PHARMACEUTICALS INC.-2013-001093

PATIENT
  Age: 55 Year
  Sex: Female

DRUGS (1)
  1. INCIVO [Suspect]
     Indication: HEPATITIS C
     Dosage: DOSAGE FORM: TABLET
     Dates: start: 20120722

REACTIONS (5)
  - Asthma [Unknown]
  - Depression [Unknown]
  - Anaemia [Unknown]
  - Eczema [Unknown]
  - Aphthous stomatitis [Unknown]
